FAERS Safety Report 15601058 (Version 1)
Quarter: 2018Q4

REPORT INFORMATION
  Report Type: Spontaneous
  Country: US (occurrence: US)
  Receive Date: 20181109
  Receipt Date: 20181109
  Transmission Date: 20190205
  Serious: No
  Sender: FDA-Public Use
  Company Number: US-KYOWAKIRIN-2018BKK005212

PATIENT

DRUGS (1)
  1. CRYSVITA [Suspect]
     Active Substance: BUROSUMAB-TWZA
     Indication: HYPOPHOSPHATAEMIA
     Dosage: 90 MG, 1X/4 WEEKS
     Route: 065
     Dates: start: 20180730

REACTIONS (2)
  - Toothache [Unknown]
  - Gingival swelling [Unknown]

NARRATIVE: CASE EVENT DATE: 20180808
